FAERS Safety Report 19384092 (Version 2)
Quarter: 2021Q4

REPORT INFORMATION
  Report Type: Spontaneous
  Country: RO (occurrence: RO)
  Receive Date: 20210608
  Receipt Date: 20211005
  Transmission Date: 20220303
  Serious: Yes (Other)
  Sender: FDA-Public Use
  Company Number: RO-SUN PHARMACEUTICAL INDUSTRIES LTD-2021RR-299757

PATIENT
  Age: 69 Year
  Sex: Female
  Weight: 60 kg

DRUGS (4)
  1. PREGABALIN [Suspect]
     Active Substance: PREGABALIN
     Indication: Product used for unknown indication
     Dosage: 75 MG/ DAY
     Route: 065
     Dates: start: 20210221, end: 20210222
  2. INDAPAMIDE [Concomitant]
     Active Substance: INDAPAMIDE
     Indication: Product used for unknown indication
     Dosage: 1.5 MG/ DAY
     Route: 065
     Dates: start: 20210221
  3. CLORZOXAZON 250 mg [Concomitant]
     Indication: Product used for unknown indication
     Dosage: UNK
     Route: 065
     Dates: start: 20210221, end: 20210222
  4. SERMION 10 MG [Concomitant]
     Indication: Product used for unknown indication
     Dosage: 30 MG/ DAY
     Route: 065

REACTIONS (1)
  - Dystonia [Recovered/Resolved]
